FAERS Safety Report 18716524 (Version 1)
Quarter: 2021Q1

REPORT INFORMATION
  Report Type: Not Available
  Country: None (occurrence: None)
  Receive Date: 20210108
  Receipt Date: 20210108
  Transmission Date: 20210419
  Serious: No
  Sender: FDA-Public Use
  Company Number: US-AKORN PHARMACEUTICALS-2020AKN00211

PATIENT
  Age: 42 Year
  Sex: Female

DRUGS (1)
  1. MYORISAN [Suspect]
     Active Substance: ISOTRETINOIN

REACTIONS (9)
  - Xerosis [Recovered/Resolved]
  - Muscle spasms [Recovered/Resolved]
  - Cheilitis [Recovered/Resolved]
  - Nasal dryness [Recovered/Resolved]
  - Myalgia [Recovered/Resolved]
  - Post inflammatory pigmentation change [Recovered/Resolved]
  - Pain in extremity [Recovered/Resolved]
  - Epistaxis [Recovered/Resolved]
  - Arthralgia [Recovered/Resolved]
